FAERS Safety Report 10971083 (Version 1)
Quarter: 2015Q1

REPORT INFORMATION
  Report Type: Spontaneous
  Country: None (occurrence: None)
  Receive Date: 20150226
  Receipt Date: 20150226
  Transmission Date: 20150721
  Serious: No
  Sender: FDA-Public Use
  Company Number: TPA2009A01173

PATIENT
  Sex: Female

DRUGS (2)
  1. UNSPECIFIED DIURETIC (DIURETICS) [Concomitant]
  2. ULORIC [Suspect]
     Active Substance: FEBUXOSTAT
     Indication: HYPERURICAEMIA
     Dosage: 40 MG, UNKNOWN
     Dates: start: 200905, end: 200905

REACTIONS (2)
  - Vision blurred [None]
  - Balance disorder [None]
